FAERS Safety Report 10834625 (Version 1)
Quarter: 2015Q1

REPORT INFORMATION
  Report Type: Report from Study
  Country: US (occurrence: US)
  Receive Date: 20150219
  Receipt Date: 20150219
  Transmission Date: 20150721
  Serious: No
  Sender: FDA-Public Use
  Company Number: US-ABBVIE-14P-163-1205838-00

PATIENT
  Age: 25 Year
  Sex: Male

DRUGS (13)
  1. WHEY PROTEIN [Concomitant]
     Indication: PRODUCT USED FOR UNKNOWN INDICATION
  2. HUMIRA [Suspect]
     Active Substance: ADALIMUMAB
  3. CREATININE [Concomitant]
     Active Substance: CREATININE
     Indication: PRODUCT USED FOR UNKNOWN INDICATION
  4. ARGININE [Concomitant]
     Active Substance: ARGININE
     Indication: PRODUCT USED FOR UNKNOWN INDICATION
  5. GINSENG [Concomitant]
     Indication: PRODUCT USED FOR UNKNOWN INDICATION
  6. MULTIVITAMINS [Concomitant]
     Active Substance: VITAMINS
     Indication: PRODUCT USED FOR UNKNOWN INDICATION
  7. B6 [Concomitant]
     Active Substance: PYRIDOXINE HYDROCHLORIDE
     Indication: PRODUCT USED FOR UNKNOWN INDICATION
  8. VITAMIN C [Concomitant]
     Active Substance: ASCORBIC ACID
     Indication: PRODUCT USED FOR UNKNOWN INDICATION
  9. PREDNISONE. [Concomitant]
     Active Substance: PREDNISONE
     Indication: PRODUCT USED FOR UNKNOWN INDICATION
  10. IMURAN [Concomitant]
     Active Substance: AZATHIOPRINE
     Indication: PRODUCT USED FOR UNKNOWN INDICATION
     Dosage: LAST PILL WAS ON 17-FEB-2014
  11. HUMIRA [Suspect]
     Active Substance: ADALIMUMAB
     Indication: CROHN^S DISEASE
     Dates: start: 20140213, end: 20140213
  12. BIOTIN [Concomitant]
     Active Substance: BIOTIN
     Indication: PRODUCT USED FOR UNKNOWN INDICATION
  13. ZINC [Concomitant]
     Active Substance: ZINC\ZINC CHLORIDE
     Indication: PRODUCT USED FOR UNKNOWN INDICATION

REACTIONS (4)
  - Rash [Not Recovered/Not Resolved]
  - Fatigue [Not Recovered/Not Resolved]
  - Myalgia [Not Recovered/Not Resolved]
  - Weight decreased [Not Recovered/Not Resolved]

NARRATIVE: CASE EVENT DATE: 201402
